FAERS Safety Report 25917298 (Version 2)
Quarter: 2025Q4

REPORT INFORMATION
  Report Type: Spontaneous
  Country: JP (occurrence: JP)
  Receive Date: 20251014
  Receipt Date: 20251127
  Transmission Date: 20260118
  Serious: Yes (Hospitalization)
  Sender: JOHNSON AND JOHNSON
  Company Number: JP-MTPC-MTPC2025-0018106

PATIENT
  Age: 50 Year
  Sex: Female

DRUGS (5)
  1. CANAGLIFLOZIN [Suspect]
     Active Substance: CANAGLIFLOZIN
     Indication: Diabetes mellitus
     Route: 048
  2. METFORMIN HYDROCHLORIDE [Suspect]
     Active Substance: METFORMIN HYDROCHLORIDE
     Indication: Diabetes mellitus
     Route: 065
  3. LIRAGLUTIDE [Suspect]
     Active Substance: LIRAGLUTIDE
     Indication: Diabetes mellitus
     Route: 065
  4. INSULIN NOS [Suspect]
     Active Substance: INSULIN NOS
     Indication: Diabetes mellitus
     Dosage: 34 ARBITRARY UNITS, QD
     Route: 042
  5. INSULIN NOS [Suspect]
     Active Substance: INSULIN NOS
     Dosage: 5.8 ARBITRARY UNITS, Q1HR
     Route: 042

REACTIONS (3)
  - Peritonitis [Unknown]
  - Diabetic ketoacidosis [Unknown]
  - Ovarian neoplasm [Unknown]
